FAERS Safety Report 14335286 (Version 2)
Quarter: 2018Q1

REPORT INFORMATION
  Report Type: Spontaneous
  Country: RO (occurrence: RO)
  Receive Date: 20171229
  Receipt Date: 20180124
  Transmission Date: 20180509
  Serious: Yes (Hospitalization)
  Sender: FDA-Public Use
  Company Number: RO-AMGEN-ROUSP2017191545

PATIENT
  Age: 54 Year
  Sex: Female
  Weight: 62 kg

DRUGS (4)
  1. ASPENTER [Concomitant]
     Active Substance: ASPIRIN
     Indication: CORONARY ARTERY DISEASE
     Dosage: 75 MG, UNK
     Route: 048
     Dates: start: 20171005
  2. NITROMINT [Concomitant]
     Indication: CORONARY ARTERY DISEASE
     Dosage: 2.6 MG, UNK
     Route: 048
     Dates: start: 20171005
  3. ENBREL [Suspect]
     Active Substance: ETANERCEPT
     Indication: RHEUMATOID ARTHRITIS
     Dosage: 50 MG, WEEKLY
     Route: 058
     Dates: start: 20170612
  4. ATACAND [Concomitant]
     Active Substance: CANDESARTAN CILEXETIL
     Indication: CORONARY ARTERY DISEASE
     Dosage: 8 MG, UNK
     Route: 048
     Dates: start: 20171005

REACTIONS (2)
  - Acute coronary syndrome [Recovered/Resolved]
  - Myocardial infarction [Recovered/Resolved]

NARRATIVE: CASE EVENT DATE: 20170929
